FAERS Safety Report 15489342 (Version 1)
Quarter: 2018Q4

REPORT INFORMATION
  Report Type: Spontaneous
  Country: US (occurrence: US)
  Receive Date: 20181011
  Receipt Date: 20181011
  Transmission Date: 20190205
  Serious: Yes (Other)
  Sender: FDA-Public Use
  Company Number: None

PATIENT
  Age: 58 Year
  Sex: Female
  Weight: 113.3 kg

DRUGS (5)
  1. SUCCINYLCHOLINE [Suspect]
     Active Substance: SUCCINYLCHOLINE
     Indication: NEUROMUSCULAR BLOCKADE
     Dosage: ?          OTHER FREQUENCY:ONCE;?
     Route: 042
     Dates: start: 20181008, end: 20181008
  2. ETOMIDATE. [Concomitant]
     Active Substance: ETOMIDATE
     Dates: start: 20181008, end: 20181008
  3. FENTANYL. [Concomitant]
     Active Substance: FENTANYL
     Dates: start: 20181008, end: 20181008
  4. DEXAMETHASONE. [Concomitant]
     Active Substance: DEXAMETHASONE
     Dates: start: 20181008, end: 20181008
  5. EPHEDRINE. [Concomitant]
     Active Substance: EPHEDRINE
     Dates: start: 20181008, end: 20181008

REACTIONS (1)
  - Drug ineffective [None]

NARRATIVE: CASE EVENT DATE: 20181009
